FAERS Safety Report 8459324-3 (Version None)
Quarter: 2012Q2

REPORT INFORMATION
  Report Type: 
  Country: None (occurrence: None)
  Receive Date: 20120622
  Receipt Date: 20120613
  Transmission Date: 20120825
  Serious: Yes (Other)
  Sender: FDA-Public Use
  Company Number: US-ROCHE-736097

PATIENT
  Sex: Male
  Weight: 79.45 kg

DRUGS (1)
  1. ACCUTANE [Suspect]
     Indication: ACNE
     Route: 065
     Dates: start: 19981101, end: 19990501

REACTIONS (5)
  - CROHN'S DISEASE [None]
  - STRESS [None]
  - IRRITABLE BOWEL SYNDROME [None]
  - DEPRESSION [None]
  - DRY EYE [None]
